FAERS Safety Report 18486496 (Version 1)
Quarter: 2020Q4

REPORT INFORMATION
  Report Type: Spontaneous
  Country: JP (occurrence: JP)
  Receive Date: 20201110
  Receipt Date: 20201110
  Transmission Date: 20210114
  Serious: Yes (Other)
  Sender: FDA-Public Use
  Company Number: JP-GUERBET-JP-20200183

PATIENT
  Age: 48 Year
  Sex: Male

DRUGS (1)
  1. LIPIODOL [Suspect]
     Active Substance: ETHIODIZED OIL
     Indication: PORTAL VEIN EMBOLISATION
     Route: 042

REACTIONS (2)
  - Post procedural bile leak [Recovered/Resolved]
  - Product use in unapproved indication [Recovered/Resolved]
